FAERS Safety Report 5316090-8 (Version None)
Quarter: 2007Q2

REPORT INFORMATION
  Report Type: 
  Country: None (occurrence: None)
  Receive Date: 20070503
  Receipt Date: 20070428
  Transmission Date: 20071010
  Serious: Yes (Other)
  Sender: FDA-Public Use
  Company Number: US-PFIZER INC-2007012931

PATIENT
  Sex: Female

DRUGS (5)
  1. REVATIO [Suspect]
     Indication: ULCER
  2. VIAGRA [Concomitant]
     Indication: ULCER
     Dates: start: 20060101, end: 20070212
  3. ALL OTHER THERAPEUTIC PRODUCTS [Concomitant]
  4. ALL OTHER THERAPEUTIC PRODUCTS [Concomitant]
  5. ALL OTHER THERAPEUTIC PRODUCTS [Concomitant]
     Route: 061

REACTIONS (4)
  - CATHETERISATION CARDIAC [None]
  - HEADACHE [None]
  - PULMONARY HYPERTENSION [None]
  - SYMPATHECTOMY [None]
